FAERS Safety Report 7721300-3 (Version None)
Quarter: 2011Q3

REPORT INFORMATION
  Report Type: 
  Country: None (occurrence: None)
  Receive Date: 20110831
  Receipt Date: 20110824
  Transmission Date: 20111222
  Serious: Yes (Other)
  Sender: FDA-Public Use
  Company Number: PHHY2011BE12679

PATIENT
  Sex: Male
  Weight: 85 kg

DRUGS (6)
  1. CALCIUM CARBONATE [Concomitant]
     Dosage: 1 G, DAILY
     Dates: start: 20100208
  2. MEDROL [Concomitant]
     Dosage: 4 MG, DAILY
     Dates: start: 20100208
  3. D-CURE [Concomitant]
     Dosage: UNK
     Dates: start: 20100208
  4. ZOMETA [Suspect]
     Indication: METASTASES TO BONE
     Dosage: 4 MG, QMO
     Dates: start: 20100208, end: 20110106
  5. TAXOTERE [Concomitant]
     Dosage: 75 MG/M2, QW3
     Dates: start: 20110106
  6. COVERAM (PERINDOPRIL ARGININE/AMLODIPINE) [Concomitant]
     Indication: HYPERTENSION

REACTIONS (6)
  - SOFT TISSUE INFECTION [None]
  - OSTEONECROSIS OF JAW [None]
  - OSTEOMYELITIS [None]
  - GINGIVAL INFECTION [None]
  - PAIN IN JAW [None]
  - BONE DISORDER [None]
